FAERS Safety Report 9460392 (Version 1)
Quarter: 2013Q3

REPORT INFORMATION
  Report Type: Spontaneous
  Country: BR (occurrence: BR)
  Receive Date: 20130815
  Receipt Date: 20130815
  Transmission Date: 20140515
  Serious: Yes (Hospitalization)
  Sender: FDA-Public Use
  Company Number: BR-PFIZER INC-2013234071

PATIENT
  Age: 60 Year
  Sex: Male
  Weight: 120 kg

DRUGS (8)
  1. LIPITOR [Suspect]
     Indication: BLOOD PRESSURE
     Dosage: 40 MG, 1X/DAY
     Route: 048
     Dates: start: 20090910
  2. ASPIRINA PREVENT [Concomitant]
     Dosage: UNK
  3. DIGOXINA [Concomitant]
     Dosage: UNK
  4. GALVUS [Concomitant]
     Dosage: UNK
  5. LANTUS [Concomitant]
     Indication: DIABETES MELLITUS
     Dosage: UNK
  6. PLAVIX [Concomitant]
     Dosage: UNK
  7. SELOZOK [Concomitant]
     Dosage: UNK
  8. NORVASC [Concomitant]
     Dosage: 1 TABLET, 1X/DAY

REACTIONS (2)
  - Infarction [Recovering/Resolving]
  - Off label use [Not Recovered/Not Resolved]
